FAERS Safety Report 5274182-6 (Version None)
Quarter: 2007Q1

REPORT INFORMATION
  Report Type: 
  Country: None (occurrence: None)
  Receive Date: 20070323
  Receipt Date: 20070312
  Transmission Date: 20070707
  Serious: Yes (Other)
  Sender: FDA-Public Use
  Company Number: US-SANOFI-SYNTHELABO-A03200702079

PATIENT
  Sex: Female

DRUGS (5)
  1. CYMBALTA [Concomitant]
     Dosage: UNK
     Route: 048
  2. WELLBUTRIN [Concomitant]
     Dosage: UNK
     Route: 048
  3. AMBIEN [Suspect]
     Indication: INSOMNIA
     Dosage: 1 (10 MG)AT BEDTIME AND 1 (10 MG) UPON WAKING UP IN THE EARLY MORNING.
     Route: 048
     Dates: start: 20000101, end: 20060405
  4. AMBIEN [Suspect]
     Dosage: 1 (10 MG)AT BEDTIME AND 1 (10 MG) UPON WAKING UP IN THE EARLY MORNING.
     Route: 048
     Dates: start: 20000101, end: 20060405
  5. ZOLOFT [Concomitant]
     Dosage: UNK
     Route: 048

REACTIONS (3)
  - EATING DISORDER [None]
  - ROAD TRAFFIC ACCIDENT [None]
  - SLEEP WALKING [None]
